FAERS Safety Report 4751839-4 (Version None)
Quarter: 2005Q3

REPORT INFORMATION
  Report Type: 
  Country: None (occurrence: None)
  Receive Date: 20050822
  Receipt Date: 20050607
  Transmission Date: 20060218
  Serious: No
  Sender: FDA-Public Use
  Company Number: PHEH2005US06405

PATIENT
  Age: 65 Year
  Sex: Female

DRUGS (4)
  1. ZELNORM [Suspect]
     Indication: IRRITABLE BOWEL SYNDROME
     Route: 048
     Dates: start: 20040101, end: 20050101
  2. ZELNORM [Suspect]
     Indication: IRRITABLE BOWEL SYNDROME
     Route: 048
     Dates: start: 20040101
  3. PREMARIN/SCH/ (ESTROGENS CONJUGATED, MEDROGESTONE) [Concomitant]
  4. PREVACID [Concomitant]

REACTIONS (2)
  - ANAL DISCOMFORT [None]
  - DIARRHOEA [None]
